FAERS Safety Report 15930619 (Version 1)
Quarter: 2019Q1

REPORT INFORMATION
  Report Type: Spontaneous
  Country: US (occurrence: US)
  Receive Date: 20190206
  Receipt Date: 20190206
  Transmission Date: 20190417
  Serious: Yes (Disabling)
  Sender: FDA-Public Use
  Company Number: None

PATIENT
  Age: 70 Year
  Sex: Male
  Weight: 108 kg

DRUGS (30)
  1. FENOFIBRATE 160MG TABLETS USP (1 BY MOUTH DAILY) [Suspect]
     Active Substance: FENOFIBRATE
     Indication: BLOOD TRIGLYCERIDES
     Dosage: ?          QUANTITY:90 TABLET(S);?
     Route: 048
     Dates: start: 20190129, end: 20190206
  2. ASPIRIN. [Concomitant]
     Active Substance: ASPIRIN
  3. NEXIUM [Concomitant]
     Active Substance: ESOMEPRAZOLE MAGNESIUM
  4. MUPIROCIN (CENTANY) [Concomitant]
  5. NASINEX [Concomitant]
  6. TRAZODONE [Concomitant]
     Active Substance: TRAZODONE HYDROCHLORIDE
  7. LIPITOR [Concomitant]
     Active Substance: ATORVASTATIN CALCIUM
  8. CELEBREX [Concomitant]
     Active Substance: CELECOXIB
  9. CHONDROITIN [Concomitant]
     Active Substance: CHONDROITIN
  10. OMEPRAZOLE. [Concomitant]
     Active Substance: OMEPRAZOLE
  11. PAPAVERINE [Concomitant]
     Active Substance: PAPAVERINE
  12. GLIMEPIRIDE. [Concomitant]
     Active Substance: GLIMEPIRIDE
  13. METOPROLOL (TARTRATE) [Concomitant]
  14. POLYETHYLENE  GLUCOL [Concomitant]
     Active Substance: POLYETHYLENE GLYCOLS
  15. BETAMETHASONE DIPROPIONATE. [Concomitant]
     Active Substance: BETAMETHASONE DIPROPIONATE
  16. HYDROCORTISONE AC [Concomitant]
  17. PROMETHAZINE HYDROCHLORIDE. [Concomitant]
     Active Substance: PROMETHAZINE HYDROCHLORIDE
  18. BYETTA [Concomitant]
     Active Substance: EXENATIDE
  19. GLUCOSAMINE [Concomitant]
     Active Substance: GLUCOSAMINE
  20. HYDROCODONE/ACITAMINOPHEN (NORCO) [Concomitant]
  21. SYNTHROID [Concomitant]
     Active Substance: LEVOTHYROXINE SODIUM
  22. BACLOFEN. [Concomitant]
     Active Substance: BACLOFEN
  23. BASAGLAR  (INSULIN GLARGINE) [Concomitant]
  24. CYMBALTA [Concomitant]
     Active Substance: DULOXETINE HYDROCHLORIDE
  25. HYDROCORTISONE ACETATE. [Concomitant]
     Active Substance: HYDROCORTISONE ACETATE
  26. PRAMOXINE [Concomitant]
     Active Substance: PRAMOXINE
  27. REGITINE [Concomitant]
     Active Substance: PHENTOLAMINE MESYLATE
  28. RELISTOR [Concomitant]
     Active Substance: METHYLNALTREXONE BROMIDE
  29. MULTIVITAMIN [Concomitant]
     Active Substance: VITAMINS
  30. RANEXA [Concomitant]
     Active Substance: RANOLAZINE

REACTIONS (13)
  - Diarrhoea [None]
  - Pruritus [None]
  - Dyspepsia [None]
  - Limb discomfort [None]
  - Condition aggravated [None]
  - Chest pain [None]
  - Musculoskeletal pain [None]
  - Dysphagia [None]
  - Fatigue [None]
  - Dry skin [None]
  - Chromaturia [None]
  - Back pain [None]
  - Gastrooesophageal reflux disease [None]

NARRATIVE: CASE EVENT DATE: 20190201
